FAERS Safety Report 7969007-1 (Version None)
Quarter: 2011Q4

REPORT INFORMATION
  Report Type: 
  Country: None (occurrence: None)
  Receive Date: 20111209
  Receipt Date: 20111202
  Transmission Date: 20120403
  Serious: Yes (Hospitalization)
  Sender: FDA-Public Use
  Company Number: PHEH2011US010464

PATIENT
  Sex: Male

DRUGS (5)
  1. BACLOFEN [Concomitant]
  2. MIRAPEX [Concomitant]
  3. GILENYA [Suspect]
     Indication: MULTIPLE SCLEROSIS
     Dosage: 0.5 MG, QD
     Route: 048
     Dates: start: 20110715, end: 20111121
  4. LASIX [Concomitant]
  5. MYSOLINE [Concomitant]
     Indication: TREMOR
     Dosage: PRN

REACTIONS (25)
  - PARANOIA [None]
  - EXCORIATION [None]
  - DEPRESSED MOOD [None]
  - BLOOD OSMOLARITY DECREASED [None]
  - RED CELL DISTRIBUTION WIDTH INCREASED [None]
  - DEMYELINATION [None]
  - DERMATITIS [None]
  - ASTHENIA [None]
  - LYMPHOEDEMA [None]
  - PRURITUS [None]
  - ACUTE PSYCHOSIS [None]
  - RASH [None]
  - BLOOD CANNABINOIDS INCREASED [None]
  - ALANINE AMINOTRANSFERASE INCREASED [None]
  - NEUTROPHIL COUNT INCREASED [None]
  - OEDEMA [None]
  - AFFECTIVE DISORDER [None]
  - HYPERTENSION [None]
  - AGGRESSION [None]
  - MUSCLE SPASTICITY [None]
  - URINE KETONE BODY PRESENT [None]
  - BLOOD CALCIUM DECREASED [None]
  - PSYCHOTIC DISORDER [None]
  - LYMPHOCYTE COUNT DECREASED [None]
  - EOSINOPHIL COUNT INCREASED [None]
